FAERS Safety Report 8031851-2 (Version None)
Quarter: 2012Q1

REPORT INFORMATION
  Report Type: 
  Country: None (occurrence: None)
  Receive Date: 20120109
  Receipt Date: 20120109
  Transmission Date: 20120608
  Serious: Yes (Hospitalization)
  Sender: FDA-Public Use
  Company Number: JP-ABBOTT-10P-087-0680298-00

PATIENT
  Sex: Male

DRUGS (45)
  1. CEFAZOLIN SODIUM [Suspect]
     Indication: PRODUCT USED FOR UNKNOWN INDICATION
     Route: 048
     Dates: start: 20100711, end: 20100718
  2. ALDACTONE [Suspect]
     Indication: PRODUCT USED FOR UNKNOWN INDICATION
     Route: 048
     Dates: start: 20100626, end: 20100706
  3. LAXOBERON [Suspect]
     Indication: PRODUCT USED FOR UNKNOWN INDICATION
     Dosage: UID/QD
     Route: 048
     Dates: start: 20100620, end: 20100620
  4. FLURBIPROFEN [Suspect]
     Indication: PRODUCT USED FOR UNKNOWN INDICATION
     Dosage: UID/QD
     Route: 041
     Dates: start: 20100709, end: 20100709
  5. MORPHINE HYDROCHLORIDE [Suspect]
     Indication: PRODUCT USED FOR UNKNOWN INDICATION
     Dosage: UID/QD
     Route: 041
     Dates: start: 20100621, end: 20100709
  6. FAMOTIDINE [Suspect]
     Indication: PRODUCT USED FOR UNKNOWN INDICATION
     Route: 048
     Dates: start: 20100626, end: 20100715
  7. AMPICILLIN [Suspect]
     Indication: PRODUCT USED FOR UNKNOWN INDICATION
     Route: 041
     Dates: start: 20100715, end: 20100716
  8. HYALEIN [Suspect]
     Indication: PRODUCT USED FOR UNKNOWN INDICATION
     Route: 047
     Dates: start: 20100723, end: 20100821
  9. ACETAMINOPHEN [Suspect]
     Indication: PRODUCT USED FOR UNKNOWN INDICATION
     Route: 054
     Dates: start: 20100630, end: 20100716
  10. ROCEPHIN [Suspect]
     Indication: INFECTION
     Dosage: UID/QD
     Route: 041
     Dates: start: 20100630, end: 20100707
  11. ACETAMINOPHEN [Suspect]
     Indication: PYREXIA
     Dosage: UID/QD
     Route: 048
     Dates: start: 20100627, end: 20100716
  12. MIDAZOLAM [Suspect]
     Indication: PRODUCT USED FOR UNKNOWN INDICATION
     Dosage: UID/QD
     Route: 041
     Dates: start: 20100621, end: 20100621
  13. PIPERACILLIN SODIUM [Suspect]
     Indication: PRODUCT USED FOR UNKNOWN INDICATION
     Route: 041
     Dates: start: 20100715, end: 20100716
  14. LASIX [Suspect]
     Indication: PRODUCT USED FOR UNKNOWN INDICATION
     Route: 048
     Dates: start: 20100626, end: 20100706
  15. TRICLORYL [Suspect]
     Indication: PRODUCT USED FOR UNKNOWN INDICATION
     Dosage: UID/QD
     Route: 048
     Dates: start: 20100628, end: 20100705
  16. HEPARINE NOVO-NORDISK [Suspect]
     Indication: PRODUCT USED FOR UNKNOWN INDICATION
     Dosage: UID/QD
     Route: 041
     Dates: start: 20100808, end: 20100812
  17. EPINEPHRINE [Suspect]
     Indication: PRODUCT USED FOR UNKNOWN INDICATION
     Dosage: UID/QD
     Route: 041
     Dates: start: 20100621, end: 20100621
  18. CALCIUM CARBONATE [Suspect]
     Indication: PRODUCT USED FOR UNKNOWN INDICATION
     Dosage: UID/QD
     Route: 041
     Dates: start: 20100621, end: 20100621
  19. ROCURONIUM BROMIDE [Suspect]
     Indication: PRODUCT USED FOR UNKNOWN INDICATION
     Dosage: UID/QD
     Route: 041
     Dates: start: 20100617, end: 20100706
  20. PANTOL [Suspect]
     Indication: PRODUCT USED FOR UNKNOWN INDICATION
     Route: 041
     Dates: start: 20100604, end: 20100705
  21. OFLOXACIN [Suspect]
     Indication: PRODUCT USED FOR UNKNOWN INDICATION
     Route: 047
     Dates: start: 20100728, end: 20100729
  22. RISPERDAL [Suspect]
     Indication: PRODUCT USED FOR UNKNOWN INDICATION
     Dosage: UID/QD
     Route: 048
     Dates: start: 20100702, end: 20100714
  23. HEPARIN SODIUM [Suspect]
     Indication: PRODUCT USED FOR UNKNOWN INDICATION
     Dosage: UID/QD
     Route: 041
     Dates: start: 20100617
  24. GLYCEOL [Suspect]
     Indication: PRODUCT USED FOR UNKNOWN INDICATION
     Dosage: 200 ML DAILY
     Route: 041
     Dates: start: 20100617, end: 20100618
  25. NICARDIPINE HCL [Suspect]
     Indication: PRODUCT USED FOR UNKNOWN INDICATION
     Route: 041
     Dates: start: 20100622, end: 20100624
  26. LANSOPRAZOLE [Suspect]
     Indication: PRODUCT USED FOR UNKNOWN INDICATION
     Route: 048
     Dates: start: 20100628, end: 20100728
  27. ULTIVA [Suspect]
     Indication: PRODUCT USED FOR UNKNOWN INDICATION
     Route: 041
     Dates: start: 20100621, end: 20100708
  28. FAMOTIDINE [Suspect]
     Route: 041
     Dates: start: 20100617, end: 20100626
  29. CEFAZOLIN [Suspect]
     Indication: PRODUCT USED FOR UNKNOWN INDICATION
     Route: 041
     Dates: start: 20100622, end: 20100624
  30. ATARAX [Suspect]
     Indication: PRODUCT USED FOR UNKNOWN INDICATION
     Dosage: UID/QD
     Route: 041
     Dates: start: 20100709, end: 20100709
  31. MIDAZOLAM HCL [Suspect]
     Indication: PRODUCT USED FOR UNKNOWN INDICATION
     Dosage: UID/QD
     Route: 041
     Dates: start: 20100617, end: 20100709
  32. PHENOBARBITAL TAB [Suspect]
     Indication: PRODUCT USED FOR UNKNOWN INDICATION
     Route: 048
     Dates: start: 20100622, end: 20100709
  33. CEFAZOLIN SODIUM [Suspect]
     Indication: PRODUCT USED FOR UNKNOWN INDICATION
     Route: 048
     Dates: start: 20100711, end: 20100718
  34. CLINDAMYCIN PHOSPHATE [Suspect]
     Indication: PRODUCT USED FOR UNKNOWN INDICATION
     Route: 041
     Dates: start: 20100708, end: 20100710
  35. DECADRON [Suspect]
     Indication: PRODUCT USED FOR UNKNOWN INDICATION
     Dosage: 2 MG DAILY
     Route: 041
     Dates: start: 20100617, end: 20100622
  36. FENTANYL [Suspect]
     Indication: PRODUCT USED FOR UNKNOWN INDICATION
     Route: 041
     Dates: start: 20100621, end: 20100708
  37. DEXMEDETOMIDINE HYDROCHLORIDE [Suspect]
     Indication: PRODUCT USED FOR UNKNOWN INDICATION
     Route: 041
     Dates: start: 20100704, end: 20100705
  38. GLYCERIN [Suspect]
     Indication: CONSTIPATION
     Route: 054
     Dates: start: 20100621
  39. DEPAS [Suspect]
     Indication: PRODUCT USED FOR UNKNOWN INDICATION
     Dosage: UID/QD
     Route: 048
     Dates: start: 20100701, end: 20100701
  40. OMEPRAZOLE [Suspect]
     Indication: PRODUCT USED FOR UNKNOWN INDICATION
     Route: 041
     Dates: start: 20100716, end: 20100721
  41. ATROPINE SULFATE [Suspect]
     Indication: PRODUCT USED FOR UNKNOWN INDICATION
     Dosage: UID/QD
     Route: 041
     Dates: start: 20100617, end: 20100622
  42. XYLOCAINE [Suspect]
     Indication: PRODUCT USED FOR UNKNOWN INDICATION
     Dosage: UID/QD
     Route: 041
     Dates: start: 20100621, end: 20100709
  43. DIAZEPAM [Suspect]
     Indication: PRODUCT USED FOR UNKNOWN INDICATION
     Route: 048
     Dates: start: 20100622, end: 20100701
  44. DIAZEPAM [Suspect]
     Dosage: 4 ML DAILY
     Route: 048
     Dates: start: 20100702, end: 20100722
  45. LACTOBACILLUS CASEI [Suspect]
     Indication: PRODUCT USED FOR UNKNOWN INDICATION
     Dosage: 500 MG DAILY
     Route: 048
     Dates: start: 20100702, end: 20100709

REACTIONS (1)
  - DRUG RASH WITH EOSINOPHILIA AND SYSTEMIC SYMPTOMS [None]
